FAERS Safety Report 7547131 (Version 3)
Quarter: 2016Q4

REPORT INFORMATION
  Report Type: Spontaneous
  Country: US (occurrence: US)
  Receive Date: 20100819
  Receipt Date: 20161122
  Transmission Date: 20170207
  Serious: Yes (Other)
  Sender: FDA-Public Use
  Company Number: US-BAYER-201018891NA

PATIENT
  Age: 40 Year
  Sex: Female

DRUGS (2)
  1. MIRENA [Suspect]
     Active Substance: LEVONORGESTREL
     Indication: CONTRACEPTION
     Dosage: 20 MCG/24HR, CONT
     Dates: start: 20110520, end: 20161031
  2. MIRENA [Suspect]
     Active Substance: LEVONORGESTREL
     Indication: CONTRACEPTION
     Dosage: FREQUENCY: CONTINUOUS
     Route: 015
     Dates: start: 20090717

REACTIONS (15)
  - Menstruation delayed [Unknown]
  - Vaginal haemorrhage [Not Recovered/Not Resolved]
  - Post procedural haemorrhage [Unknown]
  - Genital haemorrhage [Not Recovered/Not Resolved]
  - Abdominal pain [Not Recovered/Not Resolved]
  - Amenorrhoea [Not Recovered/Not Resolved]
  - Uterine leiomyoma [None]
  - Uterine spasm [Not Recovered/Not Resolved]
  - Fear of death [Not Recovered/Not Resolved]
  - Abdominal pain [Unknown]
  - Cervical dysplasia [None]
  - Back pain [Not Recovered/Not Resolved]
  - Device issue [Unknown]
  - Pregnancy with contraceptive device [Not Recovered/Not Resolved]
  - Ovarian cyst [None]

NARRATIVE: CASE EVENT DATE: 2009
